FAERS Safety Report 23102346 (Version 4)
Quarter: 2023Q4

REPORT INFORMATION
  Report Type: Other
  Country: MX (occurrence: None)
  Receive Date: 20231025
  Receipt Date: 20231208
  Transmission Date: 20240110
  Serious: Yes (Disabling)
  Sender: FDA-Public Use
  Company Number: MX-ROCHE-3442166

PATIENT
  Age: 15 Year
  Sex: Female

DRUGS (1)
  1. ENSPRYNG [Suspect]
     Active Substance: SATRALIZUMAB-MWGE
     Indication: Neuromyelitis optica spectrum disorder
     Route: 058
     Dates: start: 20230827

REACTIONS (41)
  - Hypoaesthesia [Recovering/Resolving]
  - Paraesthesia [Recovering/Resolving]
  - Pain [Not Recovered/Not Resolved]
  - Balance disorder [Not Recovered/Not Resolved]
  - Hypersensitivity [Not Recovered/Not Resolved]
  - Ill-defined disorder [Not Recovered/Not Resolved]
  - Walking distance test abnormal [Not Recovered/Not Resolved]
  - Investigation abnormal [Not Recovered/Not Resolved]
  - Headache [Recovering/Resolving]
  - Spinal pain [Not Recovered/Not Resolved]
  - Chest pain [Recovering/Resolving]
  - Dizziness [Recovering/Resolving]
  - Arthralgia [Recovering/Resolving]
  - Sensory loss [Not Recovered/Not Resolved]
  - Paraesthesia [Not Recovered/Not Resolved]
  - Pain in extremity [Not Recovered/Not Resolved]
  - Asthenia [Not Recovered/Not Resolved]
  - Mood swings [Unknown]
  - Anger [Unknown]
  - Back pain [Unknown]
  - Fatigue [Not Recovered/Not Resolved]
  - Somnolence [Unknown]
  - Feeling guilty [Unknown]
  - Neck pain [Recovering/Resolving]
  - Back pain [Recovering/Resolving]
  - Asthenia [Not Recovered/Not Resolved]
  - Anger [Unknown]
  - Anxiety [Unknown]
  - Headache [Not Recovered/Not Resolved]
  - Dizziness [Not Recovered/Not Resolved]
  - Tenderness [Unknown]
  - Nausea [Not Recovered/Not Resolved]
  - Stress [Unknown]
  - Spinal pain [Recovering/Resolving]
  - Headache [Not Recovered/Not Resolved]
  - Influenza like illness [Recovering/Resolving]
  - Hallucination [Unknown]
  - Vomiting [Unknown]
  - Tremor [Unknown]
  - Decreased appetite [Unknown]
  - Back pain [Not Recovered/Not Resolved]

NARRATIVE: CASE EVENT DATE: 20230911
